FAERS Safety Report 8604187-6 (Version None)
Quarter: 2012Q3

REPORT INFORMATION
  Report Type: 
  Country: None (occurrence: None)
  Receive Date: 20120820
  Receipt Date: 20120814
  Transmission Date: 20120928
  Serious: No
  Sender: FDA-Public Use
  Company Number: US-PFIZER INC-2012199539

PATIENT
  Age: 71 Year
  Sex: Female
  Weight: 41.723 kg

DRUGS (4)
  1. ADVIL [Suspect]
     Dosage: 2 TABLETS OF IBUPROFEN EVERY 4 HOURS
     Dates: start: 20120801
  2. HYDROCODONE [Concomitant]
     Indication: SCIATICA
     Dosage: 05MG OR 10MG AS NEEDED
  3. ADVIL [Suspect]
     Indication: SCIATICA
     Dosage: 200 MG, AS NEEDED
     Route: 048
     Dates: start: 20120801
  4. KENALOG [Concomitant]
     Indication: SCIATICA
     Dosage: UNK

REACTIONS (2)
  - SWELLING FACE [None]
  - OVERDOSE [None]
